FAERS Safety Report 9271102 (Version 2)
Quarter: 2013Q3

REPORT INFORMATION
  Report Type: Report from Study
  Country: US (occurrence: US)
  Receive Date: 20130506
  Receipt Date: 20130703
  Transmission Date: 20140515
  Serious: Yes (Hospitalization, Other)
  Sender: FDA-Public Use
  Company Number: PHEH2013US009326

PATIENT
  Age: 12 Year
  Sex: Female
  Weight: 47.17 kg

DRUGS (16)
  1. TOBI [Suspect]
     Indication: PSEUDOMONAS INFECTION
     Dosage: 1 DF, BID (28 DAY ON AND 28 DAY OFF)
  2. PULMOZYME [Concomitant]
     Dosage: UNK
  3. ALBUTEROL [Concomitant]
     Dosage: 4 MG, UNK
  4. MUCOMYST [Concomitant]
     Dosage: UNK
  5. VITAMIN D [Concomitant]
     Dosage: UNK
  6. MAGNESIUM [Concomitant]
     Dosage: 400 MG, UNK
  7. PROBIOTIC [Concomitant]
     Dosage: UNK
  8. ERYTHROMYCIN [Concomitant]
     Dosage: 250 MG, UNK
  9. CREON 20 [Concomitant]
     Dosage: UNK
  10. PREVACID [Concomitant]
     Dosage: 15 MG, UNK
  11. FLUCONAZOLE [Concomitant]
     Dosage: UNK
  12. FLONASE [Concomitant]
     Dosage: UNK
  13. RIFAMPIN [Concomitant]
     Dosage: 150 MG, UNK
  14. VITAMIN K [Concomitant]
     Dosage: 100 UG, UNK
  15. ETHAMBUTOL [Concomitant]
     Dosage: 100 MG, UNK
  16. AQUADEKS [Concomitant]
     Dosage: UNK

REACTIONS (7)
  - Staphylococcal infection [Unknown]
  - Pneumonia [Unknown]
  - Pseudomonas infection [Unknown]
  - Mycobacterium test positive [Unknown]
  - Candida test positive [Unknown]
  - Influenza virus test positive [Unknown]
  - Fatigue [Unknown]
